FAERS Safety Report 22816532 (Version 3)
Quarter: 2023Q4

REPORT INFORMATION
  Report Type: Spontaneous
  Country: US (occurrence: US)
  Receive Date: 20230811
  Receipt Date: 20231020
  Transmission Date: 20240110
  Serious: Yes (Other)
  Sender: FDA-Public Use
  Company Number: US-APELLIS PHARMACEUTICALS-APL-2023-002807

PATIENT
  Age: 84 Year
  Sex: Male

DRUGS (6)
  1. SYFOVRE [Suspect]
     Active Substance: PEGCETACOPLAN
     Indication: Product used for unknown indication
     Dosage: OD (FIRST DOSE)
     Dates: start: 20230314
  2. SYFOVRE [Suspect]
     Active Substance: PEGCETACOPLAN
     Dosage: OS (FIRST DOSE)
     Dates: start: 20230314
  3. SYFOVRE [Suspect]
     Active Substance: PEGCETACOPLAN
     Dosage: OD (SECOND DOSE)
     Dates: start: 20230418, end: 20230418
  4. SYFOVRE [Suspect]
     Active Substance: PEGCETACOPLAN
     Dosage: OS (SECOND DOSE)
     Dates: start: 20230418, end: 20230418
  5. LATANOPROST [Concomitant]
     Active Substance: LATANOPROST
     Indication: Product used for unknown indication
     Dosage: 1 DROP IN BOTH EYES
     Route: 047
  6. DORZOLAMIDE [Concomitant]
     Active Substance: DORZOLAMIDE
     Indication: Product used for unknown indication
     Dosage: 1 DROP IN BOTH EYES
     Route: 047

REACTIONS (2)
  - Optic nerve injury [Not Recovered/Not Resolved]
  - Visual impairment [Unknown]

NARRATIVE: CASE EVENT DATE: 20230607
